FAERS Safety Report 12286716 (Version 1)
Quarter: 2016Q2

REPORT INFORMATION
  Report Type: Spontaneous
  Country: None (occurrence: None)
  Receive Date: 20160419
  Receipt Date: 20160419
  Transmission Date: 20160815
  Serious: No
  Sender: FDA-Public Use
  Company Number: None

PATIENT
  Age: 32 Year
  Sex: Male

DRUGS (1)
  1. REBIF REBIDOSE [Suspect]
     Active Substance: INTERFERON BETA-1A
     Dosage: REBIF 44MCG THREE TIMES W SUBQ
     Route: 058

REACTIONS (2)
  - Nuclear magnetic resonance imaging brain abnormal [None]
  - Condition aggravated [None]

NARRATIVE: CASE EVENT DATE: 20160418
